FAERS Safety Report 4854547-4 (Version None)
Quarter: 2005Q4

REPORT INFORMATION
  Report Type: 
  Country: None (occurrence: None)
  Receive Date: 20051215
  Receipt Date: 20051206
  Transmission Date: 20060501
  Serious: Yes (Life-Threatening, Disabling)
  Sender: FDA-Public Use
  Company Number: GB-ROCHE-427857

PATIENT
  Age: 62 Year
  Sex: Male
  Weight: 100 kg

DRUGS (8)
  1. XENICAL [Suspect]
     Indication: OBESITY
     Route: 048
     Dates: start: 20050820, end: 20050909
  2. METFORMIN [Concomitant]
     Route: 065
  3. ROSIGLITAZONE [Concomitant]
     Route: 065
  4. BENDROFLUAZIDE [Concomitant]
     Route: 065
  5. BISOPROLOL [Concomitant]
     Route: 065
  6. ENALAPRIL [Concomitant]
     Route: 065
  7. FINASTERIDE [Concomitant]
     Route: 065
  8. MOVICOL [Concomitant]
     Route: 065

REACTIONS (1)
  - CEREBRAL INFARCTION [None]
